FAERS Safety Report 9969646 (Version 1)
Quarter: 2014Q1

REPORT INFORMATION
  Report Type: Spontaneous
  Country: US (occurrence: None)
  Receive Date: 20140130
  Receipt Date: 20140130
  Transmission Date: 20141002
  Serious: Yes (Other)
  Sender: FDA-Public Use
  Company Number: PHEH2013US020599

PATIENT
  Age: 76 Year
  Sex: Male

DRUGS (1)
  1. ARCAPTA [Suspect]

REACTIONS (1)
  - Incorrect route of drug administration [None]
